FAERS Safety Report 19965449 (Version 2)
Quarter: 2021Q4

REPORT INFORMATION
  Report Type: Spontaneous
  Country: None (occurrence: FR)
  Receive Date: 20211018
  Receipt Date: 20211117
  Transmission Date: 20220303
  Serious: Yes (Hospitalization)
  Sender: FDA-Public Use
  Company Number: FR-AFSSAPSAVPA20210501

PATIENT
  Age: 22 Year
  Sex: Female

DRUGS (1)
  1. NITROUS OXIDE [Suspect]
     Active Substance: NITROUS OXIDE
     Indication: Product used for unknown indication
     Route: 055

REACTIONS (3)
  - Dysaesthesia [Recovering/Resolving]
  - Myelopathy [Recovering/Resolving]
  - Paraparesis [Recovering/Resolving]
